FAERS Safety Report 23926368 (Version 1)
Quarter: 2024Q2

REPORT INFORMATION
  Report Type: Report from Study
  Country: US (occurrence: US)
  Receive Date: 20240531
  Receipt Date: 20240531
  Transmission Date: 20240716
  Serious: No
  Sender: FDA-Public Use
  Company Number: US-AstraZeneca-CH-00630795A

PATIENT
  Sex: Female

DRUGS (2)
  1. ULTOMIRIS [Suspect]
     Active Substance: RAVULIZUMAB-CWVZ
     Indication: Myasthenia gravis
     Dosage: UNK
     Route: 065
  2. MENINGOCOCCAL GROUP B VACCINE [Concomitant]
     Active Substance: MENINGOCOCCAL GROUP B VACCINE
     Indication: Immunisation
     Dosage: UNK
     Route: 065

REACTIONS (6)
  - Fall [Unknown]
  - Walking aid user [Unknown]
  - Muscle strength abnormal [Unknown]
  - Diplopia [Unknown]
  - Eyelid ptosis [Unknown]
  - General physical health deterioration [Unknown]
